FAERS Safety Report 21248360 (Version 1)
Quarter: 2022Q3

REPORT INFORMATION
  Report Type: Report from Study
  Country: DE (occurrence: DE)
  Receive Date: 20220824
  Receipt Date: 20220824
  Transmission Date: 20221027
  Serious: Yes (Hospitalization, Other)
  Sender: FDA-Public Use
  Company Number: DE-MYLANLABS-2022M1081727

PATIENT
  Sex: Female

DRUGS (14)
  1. METHOTREXATE SODIUM [Suspect]
     Active Substance: METHOTREXATE SODIUM
     Indication: Rheumatoid arthritis
     Dosage: 10 MILLIGRAM
     Dates: start: 20170303
  2. METHOTREXATE SODIUM [Suspect]
     Active Substance: METHOTREXATE SODIUM
     Dosage: 10 MILLIGRAM
     Dates: start: 20170620
  3. METHOTREXATE SODIUM [Suspect]
     Active Substance: METHOTREXATE SODIUM
     Dosage: 10 MILLIGRAM
     Dates: start: 20170914
  4. METHOTREXATE SODIUM [Suspect]
     Active Substance: METHOTREXATE SODIUM
     Dosage: 15 MILLIGRAM
     Dates: start: 20180315
  5. METHOTREXATE SODIUM [Suspect]
     Active Substance: METHOTREXATE SODIUM
     Dosage: 15 MILLIGRAM
     Dates: start: 20181002
  6. METHOTREXATE SODIUM [Suspect]
     Active Substance: METHOTREXATE SODIUM
     Dosage: 15 MILLIGRAM
     Dates: start: 20190801
  7. METHOTREXATE SODIUM [Suspect]
     Active Substance: METHOTREXATE SODIUM
     Dosage: 15 MILLIGRAM
     Dates: start: 20200402
  8. METHOTREXATE SODIUM [Suspect]
     Active Substance: METHOTREXATE SODIUM
     Dosage: 15 MILLIGRAM
     Dates: start: 20201020
  9. UNSPECIFIED INGREDIENT [Suspect]
     Active Substance: UNSPECIFIED INGREDIENT
     Dosage: NO DOSE GIVEN
  10. HYDROXYCHLOROQUINE [Suspect]
     Active Substance: HYDROXYCHLOROQUINE
     Indication: Rheumatoid arthritis
     Dosage: 200 MILLIGRAM
     Dates: start: 20200402
  11. HYDROXYCHLOROQUINE [Suspect]
     Active Substance: HYDROXYCHLOROQUINE
     Dosage: 200 MILLIGRAM
     Dates: start: 20201020
  12. MABTHERA [Suspect]
     Active Substance: RITUXIMAB
     Indication: Rheumatoid arthritis
     Dosage: 500 MILLIGRAM
     Dates: start: 201702
  13. OLUMIANT [Suspect]
     Active Substance: BARICITINIB
     Indication: Rheumatoid arthritis
     Dosage: 4 MILLIGRAM
     Dates: start: 201706
  14. OLUMIANT [Suspect]
     Active Substance: BARICITINIB
     Dosage: 4 MILLIGRAM
     Dates: end: 201801

REACTIONS (35)
  - Septic arthritis staphylococcal [Not Recovered/Not Resolved]
  - Arthritis infective [Not Recovered/Not Resolved]
  - Joint dislocation [Not Recovered/Not Resolved]
  - Gastritis erosive [Recovered/Resolved]
  - Impaired healing [Recovered/Resolved]
  - Wound infection staphylococcal [Recovered/Resolved]
  - Tendon rupture [Not Recovered/Not Resolved]
  - Immunodeficiency [Recovered/Resolved]
  - Joint fistula [Recovered/Resolved]
  - Rheumatoid arthritis [Recovered/Resolved]
  - Arthralgia [Unknown]
  - Wrist fracture [Not Recovered/Not Resolved]
  - Wound dehiscence [Recovered/Resolved]
  - Influenza like illness [Recovered/Resolved]
  - Headache [Not Recovered/Not Resolved]
  - Depressed mood [Unknown]
  - Bone marrow disorder [Unknown]
  - Palpitations [Recovered/Resolved]
  - Osteopenia [Unknown]
  - Inflammation [Not Recovered/Not Resolved]
  - Sinus tachycardia [Unknown]
  - Bronchitis [Unknown]
  - Gastroenteritis [Recovered/Resolved]
  - Gastrointestinal infection [Recovered/Resolved]
  - Dyspnoea exertional [Not Recovered/Not Resolved]
  - Iron deficiency anaemia [Unknown]
  - Pharyngitis [Recovered/Resolved]
  - Glycosylated haemoglobin increased [Not Recovered/Not Resolved]
  - Hypertension [Unknown]
  - Diastolic dysfunction [Unknown]
  - Osteoarthritis [Unknown]
  - Fall [Not Recovered/Not Resolved]
  - Chondrocalcinosis [Unknown]
  - Back pain [Not Recovered/Not Resolved]
  - Musculoskeletal pain [Unknown]

NARRATIVE: CASE EVENT DATE: 20180501
